FAERS Safety Report 9270882 (Version 2)
Quarter: 2013Q3

REPORT INFORMATION
  Report Type: Spontaneous
  Country: US (occurrence: US)
  Receive Date: 20130506
  Receipt Date: 20130710
  Transmission Date: 20140515
  Serious: No
  Sender: FDA-Public Use
  Company Number: US-009507513-1304USA017248

PATIENT
  Age: 30 Year
  Sex: Female
  Weight: 63.39 kg

DRUGS (1)
  1. NEXPLANON [Suspect]
     Indication: CONTRACEPTION
     Dosage: UNK
     Route: 059
     Dates: start: 20130311, end: 20130425

REACTIONS (3)
  - Muscle spasms [Recovered/Resolved]
  - Device expulsion [Recovered/Resolved]
  - Impaired healing [Not Recovered/Not Resolved]
